FAERS Safety Report 7905388-2 (Version None)
Quarter: 2011Q4

REPORT INFORMATION
  Report Type: 
  Country: None (occurrence: None)
  Receive Date: 20111109
  Receipt Date: 20111107
  Transmission Date: 20120403
  Serious: No
  Sender: FDA-Public Use
  Company Number: US-MERCK-1110USA00673

PATIENT
  Age: 88 Year
  Sex: Male

DRUGS (10)
  1. VITAMIN D (UNSPECIFIED) [Concomitant]
     Route: 065
  2. NEXIUM [Concomitant]
     Route: 065
  3. JANUVIA [Suspect]
     Indication: DIABETES MELLITUS
     Route: 048
     Dates: start: 20090401, end: 20110501
  4. NIACIN [Concomitant]
     Route: 065
  5. ALLOPURINOL [Concomitant]
     Route: 065
  6. VENLAFAXINE HYDROCHLORIDE [Concomitant]
     Route: 065
  7. JANUVIA [Suspect]
     Route: 048
     Dates: start: 20110601, end: 20110801
  8. METFORMIN [Concomitant]
     Route: 065
  9. OMEGA-3 MARINE TRIGLYCERIDES [Concomitant]
     Route: 065
  10. AGGRENOX [Concomitant]
     Route: 065

REACTIONS (1)
  - NEUTROPENIA [None]
